FAERS Safety Report 23959314 (Version 1)
Quarter: 2024Q2

REPORT INFORMATION
  Report Type: Report from Study
  Country: CA (occurrence: CA)
  Receive Date: 20240611
  Receipt Date: 20240611
  Transmission Date: 20240716
  Serious: Yes (Other)
  Sender: FDA-Public Use
  Company Number: CA-CELLTRION INC.-2024CA013735

PATIENT

DRUGS (1)
  1. TRUXIMA [Suspect]
     Active Substance: RITUXIMAB-ABBS
     Indication: Rheumatoid arthritis
     Dosage: 1000 MILLIGRAM, DAY1 AND 15
     Route: 042
     Dates: start: 20220513

REACTIONS (4)
  - Suture insertion [Not Recovered/Not Resolved]
  - Wound secretion [Unknown]
  - Localised infection [Unknown]
  - Intentional dose omission [Unknown]
